FAERS Safety Report 5868470-X (Version None)
Quarter: 2008Q3

REPORT INFORMATION
  Report Type: 
  Country: None (occurrence: None)
  Receive Date: 20080828
  Receipt Date: 20080814
  Transmission Date: 20090109
  Serious: Yes (Other)
  Sender: FDA-Public Use
  Company Number: 237733J08USA

PATIENT
  Age: 38 Year
  Sex: Female
  Weight: 97.5234 kg

DRUGS (10)
  1. REBIF [Suspect]
     Indication: MULTIPLE SCLEROSIS
     Dosage: 44 MCG, 3 IN 1 WEEKS, SUBCUTANEOUS
     Route: 058
     Dates: start: 20060426
  2. COUMADIN [Concomitant]
  3. ABILIFY [Concomitant]
  4. EFFEXOR [Concomitant]
  5. TRAZODONE HCL [Concomitant]
  6. PROVIGIL [Concomitant]
  7. PERCOCET [Concomitant]
  8. MS CONTIN [Concomitant]
  9. TOPAMAX [Concomitant]
  10. LYRICA [Concomitant]

REACTIONS (4)
  - AMNESIA [None]
  - BALANCE DISORDER [None]
  - COMPLEX PARTIAL SEIZURES [None]
  - CONDITION AGGRAVATED [None]
